FAERS Safety Report 10027328 (Version 2)
Quarter: 2014Q2

REPORT INFORMATION
  Report Type: Spontaneous
  Country: BR (occurrence: BR)
  Receive Date: 20140321
  Receipt Date: 20140401
  Transmission Date: 20141212
  Serious: Yes (Other)
  Sender: FDA-Public Use
  Company Number: PHHY2014BR032529

PATIENT
  Age: 61 Year
  Sex: Female
  Weight: 69 kg

DRUGS (10)
  1. ALENDRONATE SANDOZ [Suspect]
     Dosage: 70 MG, QW
     Route: 048
     Dates: start: 20140117, end: 20140307
  2. AAS [Concomitant]
     Dosage: 100 MG, QD
     Route: 048
  3. LYSTATE [Concomitant]
     Dosage: 120 MG, BID
     Route: 048
  4. ZANIDIP [Concomitant]
     Indication: HYPERTENSION
     Dosage: 10 MG, QD
     Route: 048
  5. BENICAR [Concomitant]
     Indication: HYPERTENSION
     Dosage: 40 MG, QD
  6. PURAN T4 [Concomitant]
     Dosage: 88 UG, QD
  7. VYTORIN [Concomitant]
     Dosage: 1 DF, UNK(1 TABLET ON TUESDAY, THURSDAY AND ON SATURDAY)
  8. VITAMIN D3 [Concomitant]
     Dosage: UNK (2 TABLETS PER WEEK ON MONDAY AND FRIDAY TO REPLACE VITAMIN D)
  9. OSCAL D [Concomitant]
     Dosage: 500 MG, BID
  10. JANUMET [Concomitant]
     Indication: DIABETES MELLITUS
     Dosage: UNK (1 TABLET IN THE MORNING)

REACTIONS (4)
  - Eye infection bacterial [Recovered/Resolved]
  - Vision blurred [Recovered/Resolved]
  - Ocular hyperaemia [Recovered/Resolved]
  - Eye pain [Recovered/Resolved]
